FAERS Safety Report 16348699 (Version 2)
Quarter: 2019Q2

REPORT INFORMATION
  Report Type: Report from Study
  Country: US (occurrence: US)
  Receive Date: 20190523
  Receipt Date: 20190604
  Transmission Date: 20190711
  Serious: Yes (Hospitalization)
  Sender: FDA-Public Use
  Company Number: US-EXELIXIS-CABO-19021233

PATIENT
  Age: 63 Year
  Sex: Male

DRUGS (10)
  1. LOPERAMIDE [Concomitant]
     Active Substance: LOPERAMIDE
  2. BACLOFEN. [Concomitant]
     Active Substance: BACLOFEN
  3. CRESTOR [Concomitant]
     Active Substance: ROSUVASTATIN CALCIUM
  4. CABOMETYX [Suspect]
     Active Substance: CABOZANTINIB S-MALATE
     Indication: RENAL CANCER
     Dosage: 60 MG, QD
     Route: 048
     Dates: start: 20190322, end: 20190506
  5. ASPIRIN. [Concomitant]
     Active Substance: ASPIRIN
     Dosage: UNK
  6. PREDNISONE. [Concomitant]
     Active Substance: PREDNISONE
  7. PROBIOTIC [Concomitant]
     Active Substance: PROBIOTICS NOS
  8. LUNESTA [Concomitant]
     Active Substance: ESZOPICLONE
  9. GABAPENTIN. [Concomitant]
     Active Substance: GABAPENTIN
  10. CETIRIZINE [Concomitant]
     Active Substance: CETIRIZINE HYDROCHLORIDE

REACTIONS (4)
  - Decubitus ulcer [Not Recovered/Not Resolved]
  - Skin exfoliation [Unknown]
  - Fatigue [Unknown]
  - Stomatitis [Unknown]

NARRATIVE: CASE EVENT DATE: 20190506
